FAERS Safety Report 6187277-X (Version None)
Quarter: 2009Q2

REPORT INFORMATION
  Report Type: 
  Country: None (occurrence: None)
  Receive Date: 20090512
  Receipt Date: 20090507
  Transmission Date: 20091009
  Serious: Yes (Hospitalization, Disabling, Other)
  Sender: FDA-Public Use
  Company Number: US-ROXANE LABORATORIES, INC.-2009-RO-00462RO

PATIENT
  Age: 51 Year
  Sex: Male

DRUGS (11)
  1. METHOTREXATE [Suspect]
     Indication: PSORIASIS
  2. METHOTREXATE [Suspect]
     Indication: PSORIATIC ARTHROPATHY
  3. FLUCONAZOLE [Suspect]
     Indication: INFECTION
  4. ETANERCEPT [Suspect]
     Indication: PSORIASIS
  5. ETANERCEPT [Suspect]
     Indication: PSORIATIC ARTHROPATHY
  6. ANTIBIOTICS [Suspect]
     Indication: MENINGITIS BACTERIAL
  7. ANTIBIOTICS [Suspect]
     Indication: PNEUMONIA
  8. VANCOMYCIN HCL [Suspect]
     Indication: INFECTION
  9. CIPROFLOXACIN [Suspect]
     Indication: INFECTION
  10. HEPARIN [Concomitant]
     Indication: PULMONARY EMBOLISM
  11. WARFARIN SODIUM [Concomitant]
     Indication: PULMONARY EMBOLISM

REACTIONS (15)
  - CANDIDIASIS [None]
  - DYSPHAGIA [None]
  - EXTRADURAL ABSCESS [None]
  - INTERVERTEBRAL DISCITIS [None]
  - MECHANICAL VENTILATION [None]
  - MENINGITIS BACTERIAL [None]
  - NERVOUS SYSTEM DISORDER [None]
  - OSTEOMYELITIS [None]
  - PNEUMONIA [None]
  - PULMONARY EMBOLISM [None]
  - QUADRIPLEGIA [None]
  - RESPIRATORY FAILURE [None]
  - SERRATIA INFECTION [None]
  - SPINAL CORD INFARCTION [None]
  - STAPHYLOCOCCAL SEPSIS [None]
